FAERS Safety Report 9738853 (Version 2)
Quarter: 2014Q1

REPORT INFORMATION
  Report Type: Spontaneous
  Country: US (occurrence: US)
  Receive Date: 20131209
  Receipt Date: 20140117
  Transmission Date: 20141002
  Serious: No
  Sender: FDA-Public Use
  Company Number: US-PFIZER INC-2013347358

PATIENT
  Age: 51 Year
  Sex: Male
  Weight: 122 kg

DRUGS (7)
  1. GLUCOTROL [Suspect]
     Indication: DIABETES MELLITUS
     Dosage: 10 MG, 2X/DAY
     Route: 048
     Dates: end: 201311
  2. NEURONTIN [Concomitant]
     Indication: DIABETIC NEUROPATHY
     Dosage: 1200 MG (BY TAKING 2 TABLETS OF 600MG TOGETHER), 3X/DAY
     Route: 048
  3. CADUET [Concomitant]
     Dosage: UNK
  4. BABY ASPIRIN [Concomitant]
     Dosage: UNK
  5. NAPROXEN [Concomitant]
     Dosage: 500 MG, 2X/DAY
  6. METFORMIN [Concomitant]
     Dosage: 1000 MG, 2X/DAY
  7. DIOVAN HCT [Concomitant]
     Dosage: 320/25 MG, 1X/DAY

REACTIONS (1)
  - Drug ineffective [Unknown]
